FAERS Safety Report 20891199 (Version 1)
Quarter: 2022Q2

REPORT INFORMATION
  Report Type: Spontaneous
  Country: FR (occurrence: FR)
  Receive Date: 20220530
  Receipt Date: 20220530
  Transmission Date: 20220721
  Serious: Yes (Hospitalization)
  Sender: FDA-Public Use
  Company Number: None

PATIENT
  Age: 73 Year
  Sex: Male
  Weight: 116.4 kg

DRUGS (3)
  1. SALAZOPYRINE [Suspect]
     Active Substance: SULFASALAZINE
     Indication: Rheumatoid arthritis
     Dosage: 3000 MG, 1X/DAY
     Route: 048
     Dates: start: 2016
  2. BETNEVAL NEO [Concomitant]
     Dosage: UNK
  3. BILASTINE [Concomitant]
     Active Substance: BILASTINE
     Dosage: UNK

REACTIONS (1)
  - Axonal neuropathy [Not Recovered/Not Resolved]

NARRATIVE: CASE EVENT DATE: 20210318
